FAERS Safety Report 15451233 (Version 4)
Quarter: 2019Q3

REPORT INFORMATION
  Report Type: Report from Study
  Country: AU (occurrence: AU)
  Receive Date: 20181001
  Receipt Date: 20190802
  Transmission Date: 20191004
  Serious: Yes (Other)
  Sender: FDA-Public Use
  Company Number: PHHY2018AU045857

PATIENT
  Age: 35 Year
  Sex: Male

DRUGS (1)
  1. COSENTYX [Suspect]
     Active Substance: SECUKINUMAB
     Indication: PSORIASIS
     Dosage: UNK
     Route: 065
     Dates: start: 20171219

REACTIONS (2)
  - Haemophilus infection [Recovered/Resolved]
  - Hepatic cyst [Not Recovered/Not Resolved]

NARRATIVE: CASE EVENT DATE: 20180115
